FAERS Safety Report 18352742 (Version 1)
Quarter: 2020Q4

REPORT INFORMATION
  Report Type: Spontaneous
  Country: IT (occurrence: IT)
  Receive Date: 20201007
  Receipt Date: 20201007
  Transmission Date: 20210114
  Serious: Yes (Other)
  Sender: FDA-Public Use
  Company Number: IT-AUROBINDO-AUR-APL-2020-050936

PATIENT
  Age: 60 Year
  Sex: Male

DRUGS (7)
  1. CETUXIMAB. [Suspect]
     Active Substance: CETUXIMAB
     Indication: RECTAL ADENOCARCINOMA
     Dosage: UNK 1 CYCLICAL
     Route: 065
  2. FLUOROURACIL. [Suspect]
     Active Substance: FLUOROURACIL
     Dosage: UNK 2 CYCLICAL (BOLUS, CYCLE 5-CYCLE 6)
     Route: 065
  3. OXALIPLATIN. [Suspect]
     Active Substance: OXALIPLATIN
     Indication: RECTAL ADENOCARCINOMA
     Dosage: UNK 5 CYCLICAL
     Route: 065
  4. CETUXIMAB. [Suspect]
     Active Substance: CETUXIMAB
     Dosage: UNK 4 CYCLICAL (DOSE REDUCED TO 50%)
     Route: 065
  5. FLUOROURACIL. [Suspect]
     Active Substance: FLUOROURACIL
     Indication: RECTAL ADENOCARCINOMA
     Dosage: UNK 1 CYCLICAL (ON 4TH CYCLE FURTHER REDUCED)
     Route: 065
  6. FOLINIC ACID [Suspect]
     Active Substance: LEUCOVORIN
     Indication: RECTAL ADENOCARCINOMA
     Dosage: UNK 5 CYCLICAL
     Route: 065
  7. FLUOROURACIL. [Suspect]
     Active Substance: FLUOROURACIL
     Dosage: UNK 3 CYCLICAL (CONTINUOUS)
     Route: 065

REACTIONS (4)
  - Diarrhoea [Unknown]
  - Nausea [Unknown]
  - Rash macular [Unknown]
  - Toxicity to various agents [Unknown]
